FAERS Safety Report 16165343 (Version 4)
Quarter: 2020Q2

REPORT INFORMATION
  Report Type: Spontaneous
  Country: CA (occurrence: CA)
  Receive Date: 20190405
  Receipt Date: 20200527
  Transmission Date: 20200713
  Serious: Yes (Death, Other)
  Sender: FDA-Public Use
  Company Number: CA-PFIZER INC-2019144501

PATIENT
  Age: 73 Year
  Sex: Male
  Weight: 62.1 kg

DRUGS (4)
  1. PANTOPRAZOLE [Suspect]
     Active Substance: PANTOPRAZOLE
     Indication: BRAIN NEOPLASM MALIGNANT
     Dosage: UNK
  2. DILANTIN [Concomitant]
     Active Substance: PHENYTOIN
     Dosage: UNK, 1X/DAY
     Route: 065
  3. AVASTIN [Suspect]
     Active Substance: BEVACIZUMAB
     Indication: BRAIN NEOPLASM MALIGNANT
     Dosage: 710 MG, CYCLIC Q2WEEKS (ONCE EVERY TWO WEEKS)
     Route: 042
     Dates: start: 2018
  4. AVASTIN [Suspect]
     Active Substance: BEVACIZUMAB
     Dosage: 621 MG, CYCLIC Q2WEEKS (ONCE EVERY TWO WEEKS)
     Route: 042
     Dates: start: 2018

REACTIONS (10)
  - Death [Fatal]
  - Cough [Not Recovered/Not Resolved]
  - Drug ineffective for unapproved indication [Unknown]
  - Hiccups [Unknown]
  - Nausea [Unknown]
  - Vomiting [Not Recovered/Not Resolved]
  - Fatigue [Not Recovered/Not Resolved]
  - Asthenia [Unknown]
  - Weight decreased [Unknown]
  - Off label use [Unknown]

NARRATIVE: CASE EVENT DATE: 2018
